FAERS Safety Report 7449445-6 (Version None)
Quarter: 2011Q2

REPORT INFORMATION
  Report Type: 
  Country: None (occurrence: None)
  Receive Date: 20110502
  Receipt Date: 20110425
  Transmission Date: 20111010
  Serious: No
  Sender: FDA-Public Use
  Company Number: US-BIOGENIDEC-2011BI015362

PATIENT
  Age: 44 Year
  Sex: Female

DRUGS (1)
  1. AVONEX [Suspect]
     Indication: MULTIPLE SCLEROSIS
     Route: 030
     Dates: start: 20080214

REACTIONS (6)
  - BLOOD IRON DECREASED [None]
  - PARAESTHESIA [None]
  - FATIGUE [None]
  - VITAMIN B12 DECREASED [None]
  - FEMALE STERILISATION [None]
  - DIZZINESS [None]
